FAERS Safety Report 5206791-4 (Version None)
Quarter: 2006Q4

REPORT INFORMATION
  Report Type: 
  Country: None (occurrence: None)
  Receive Date: 20061027
  Receipt Date: 20060711
  Transmission Date: 20070319
  Serious: No
  Sender: FDA-Public Use
  Company Number: 012378

PATIENT
  Age: 50 Year
  Sex: Female

DRUGS (4)
  1. PRIALT [Suspect]
     Indication: BONE DISORDER
     Dosage: ONCE/HOUR, INTRATHECAL; SEE IMAGE
     Route: 037
     Dates: start: 20060101
  2. PRIALT [Suspect]
     Indication: BONE DISORDER
     Dosage: ONCE/HOUR, INTRATHECAL; SEE IMAGE
     Route: 037
     Dates: start: 20060427
  3. VICODIN [Concomitant]
  4. CODEINE SUL TAB [Concomitant]

REACTIONS (1)
  - VISUAL FIELD DEFECT [None]
